FAERS Safety Report 8051272-6 (Version None)
Quarter: 2012Q1

REPORT INFORMATION
  Report Type: 
  Country: None (occurrence: None)
  Receive Date: 20120117
  Receipt Date: 20120105
  Transmission Date: 20120608
  Serious: Yes (Other)
  Sender: FDA-Public Use
  Company Number: US-ASTRAZENECA-2012SE01311

PATIENT
  Age: 52 Year
  Sex: Female

DRUGS (2)
  1. SEROQUEL XR [Suspect]
     Indication: SCHIZOAFFECTIVE DISORDER
     Route: 048
     Dates: start: 20120101, end: 20120101
  2. DEPAKOTE [Concomitant]
     Route: 048
     Dates: start: 20120101, end: 20120101

REACTIONS (1)
  - ELECTROCARDIOGRAM QT PROLONGED [None]
